FAERS Safety Report 7943230-4 (Version None)
Quarter: 2011Q4

REPORT INFORMATION
  Report Type: 
  Country: None (occurrence: None)
  Receive Date: 20111128
  Receipt Date: 20111121
  Transmission Date: 20120403
  Serious: Yes (Hospitalization)
  Sender: FDA-Public Use
  Company Number: PHHO2011IE019530

PATIENT
  Sex: Male
  Weight: 60.4 kg

DRUGS (10)
  1. ALISKIREN [Suspect]
     Indication: CARDIOVASCULAR DISORDER
     Dosage: 300 MG, QD
     Dates: start: 20111017, end: 20111108
  2. AMLODIPINE [Suspect]
     Indication: CARDIOVASCULAR DISORDER
     Dosage: 5 MG, QD
     Dates: start: 20111017, end: 20111108
  3. BLINDED NO TREATMENT RECEIVED [Suspect]
     Indication: CARDIOVASCULAR DISORDER
     Dosage: ACTIVE RUN-IN PHASE
  4. ATORVASTATIN [Concomitant]
  5. ESIDRIX [Suspect]
     Indication: CARDIOVASCULAR DISORDER
     Dosage: ACTIVE RUN-IN PHASE
  6. DUTASTERIDE [Concomitant]
  7. BLINDED PLACEBO [Suspect]
     Indication: CARDIOVASCULAR DISORDER
     Dosage: ACTIVE RUN-IN PHASE
  8. BLINDED ALISKIREN [Suspect]
     Indication: CARDIOVASCULAR DISORDER
     Dosage: ACTIVE RUN-IN PHASE
  9. AMLODIPINE [Suspect]
     Indication: CARDIOVASCULAR DISORDER
     Dosage: ACTIVE RUN-IN PHASE
  10. SELEGILINE [Concomitant]

REACTIONS (3)
  - NAUSEA [None]
  - CHEST PAIN [None]
  - DIZZINESS [None]
